FAERS Safety Report 19711752 (Version 2)
Quarter: 2021Q3

REPORT INFORMATION
  Report Type: Spontaneous
  Country: US (occurrence: US)
  Receive Date: 20210817
  Receipt Date: 20210820
  Transmission Date: 20211014
  Serious: Yes (Hospitalization)
  Sender: FDA-Public Use
  Company Number: US-G1-000324

PATIENT
  Sex: Female

DRUGS (1)
  1. COSELA [Suspect]
     Active Substance: TRILACICLIB DIHYDROCHLORIDE
     Indication: MYELOSUPPRESSION
     Dosage: TIME INTERVAL: CYCLICAL; EACH DAY PRIOR TO CHEMOTHERAPY TREATMENT
     Route: 042
     Dates: start: 20210712, end: 20210714

REACTIONS (2)
  - Pain [Recovered/Resolved]
  - Dyspnoea [Recovered/Resolved]
